FAERS Safety Report 5565268-7 (Version None)
Quarter: 2007Q4

REPORT INFORMATION
  Report Type: 
  Country: None (occurrence: None)
  Receive Date: 20071213
  Receipt Date: 20071130
  Transmission Date: 20080405
  Serious: Yes (Other)
  Sender: FDA-Public Use
  Company Number: 2007SP024367

PATIENT

DRUGS (1)
  1. CLARITIN [Suspect]
     Dosage: PRN;PO
     Route: 048

REACTIONS (2)
  - DRY MOUTH [None]
  - OEDEMA MOUTH [None]
